FAERS Safety Report 6253637-1 (Version None)
Quarter: 2009Q3

REPORT INFORMATION
  Report Type: 
  Country: None (occurrence: None)
  Receive Date: 20090701
  Receipt Date: 20090622
  Transmission Date: 20100115
  Serious: Yes (Other)
  Sender: FDA-Public Use
  Company Number: US-PFIZER INC-2009210542

PATIENT
  Sex: Male
  Weight: 17.2 kg

DRUGS (3)
  1. GENOTROPIN [Suspect]
     Indication: GROWTH HORMONE DEFICIENCY
     Dosage: 0.8 MG, 1X/DAY
     Dates: start: 20070301
  2. MONTELUKAST SODIUM [Concomitant]
     Dosage: UNK
  3. LORATADINE [Concomitant]
     Dosage: UNK

REACTIONS (4)
  - AUTISM [None]
  - DIARRHOEA [None]
  - FOOD ALLERGY [None]
  - WHITE BLOOD CELL COUNT INCREASED [None]
